FAERS Safety Report 7773319-4 (Version None)
Quarter: 2011Q3

REPORT INFORMATION
  Report Type: 
  Country: None (occurrence: None)
  Receive Date: 20110922
  Receipt Date: 20110915
  Transmission Date: 20111222
  Serious: Yes (Hospitalization, Other)
  Sender: FDA-Public Use
  Company Number: FR-PFIZER INC-2011220074

PATIENT
  Age: 83 Year
  Sex: Male

DRUGS (8)
  1. TEMSIROLIMUS [Suspect]
     Indication: METASTATIC RENAL CELL CARCINOMA
     Dosage: 25 MG, WEEKLY
     Route: 042
  2. ACEBUTOLOL [Concomitant]
     Dosage: 100 MG, 2X/DAY
  3. AMIODARONE [Concomitant]
     Dosage: 200 MG, DAILY (5 DAYS PER WEEK)
  4. ATORVASTATIN [Concomitant]
     Dosage: 20 MG, DAILY
  5. PYRAZINAMIDE [Concomitant]
     Dosage: 1500 MG, 1X/DAY
     Route: 048
  6. ACETYLSALICYLIC ACID [Concomitant]
     Dosage: 75 MG, DAILY
  7. ISONIAZID [Concomitant]
     Indication: TUBERCULOSIS
     Dosage: 250 MG, 1X/DAY
     Route: 048
  8. RIFAMPICIN [Suspect]
     Indication: TUBERCULOSIS
     Dosage: 600 MG, 1X/DAY
     Route: 048

REACTIONS (7)
  - DISEASE PROGRESSION [None]
  - RENAL CELL CARCINOMA [None]
  - DYSPNOEA [None]
  - COUGH [None]
  - DRUG INTERACTION [None]
  - TUBERCULOSIS [None]
  - PYREXIA [None]
